FAERS Safety Report 18330582 (Version 2)
Quarter: 2020Q4

REPORT INFORMATION
  Report Type: Spontaneous
  Country: US (occurrence: US)
  Receive Date: 20200930
  Receipt Date: 20201002
  Transmission Date: 20210113
  Serious: Yes (Life-Threatening, Hospitalization, Other)
  Sender: FDA-Public Use
  Company Number: US-PFIZER INC-2020376149

PATIENT
  Age: 38 Year
  Sex: Male

DRUGS (2)
  1. CHANTIX [Suspect]
     Active Substance: VARENICLINE TARTRATE
     Indication: SMOKING CESSATION THERAPY
     Dosage: UNK
  2. ALCOHOL. [Interacting]
     Active Substance: ALCOHOL
     Dosage: UNK

REACTIONS (4)
  - Loss of consciousness [Unknown]
  - Alcohol interaction [Unknown]
  - Suicide attempt [Unknown]
  - Toxicity to various agents [Unknown]
